FAERS Safety Report 10650828 (Version 2)
Quarter: 2014Q4

REPORT INFORMATION
  Report Type: Report from Study
  Country: US (occurrence: US)
  Receive Date: 20141215
  Receipt Date: 20141225
  Transmission Date: 20150529
  Serious: Yes (Death)
  Sender: FDA-Public Use
  Company Number: US-AMGEN-USASL2014096578

PATIENT
  Age: 82 Year
  Sex: Female
  Weight: 51.7 kg

DRUGS (1)
  1. PROLIA [Suspect]
     Active Substance: DENOSUMAB
     Indication: OSTEOPOROSIS POSTMENOPAUSAL
     Dosage: 60 MG/ML, Q6MO, ONLY ONE DOSE GIVEN
     Route: 058
     Dates: start: 20140618

REACTIONS (1)
  - Death [Fatal]

NARRATIVE: CASE EVENT DATE: 20140828
